FAERS Safety Report 7894266-3 (Version None)
Quarter: 2011Q4

REPORT INFORMATION
  Report Type: 
  Country: None (occurrence: None)
  Receive Date: 20111104
  Receipt Date: 20111104
  Transmission Date: 20120403
  Serious: Yes (Hospitalization, Other)
  Sender: FDA-Public Use
  Company Number: US-B.I. PHARMACEUTICALS,INC./RIDGEFIELD-2011-BP-13437BP

PATIENT
  Age: 84 Year
  Sex: Female

DRUGS (2)
  1. PRADAXA [Suspect]
     Dosage: 300 MG
  2. LANOXIN [Concomitant]

REACTIONS (5)
  - CREATININE RENAL CLEARANCE DECREASED [None]
  - ABDOMINAL PAIN UPPER [None]
  - HAEMORRHAGE [None]
  - HAEMOGLOBIN DECREASED [None]
  - HAEMATOCRIT DECREASED [None]
